FAERS Safety Report 15656202 (Version 2)
Quarter: 2018Q4

REPORT INFORMATION
  Report Type: Spontaneous
  Country: ES (occurrence: ES)
  Receive Date: 20181126
  Receipt Date: 20181219
  Transmission Date: 20190205
  Serious: Yes (Disabling, Other)
  Sender: FDA-Public Use
  Company Number: ES-TOLMAR, INC.-TOLG20180653

PATIENT
  Age: 47 Year
  Sex: Male

DRUGS (3)
  1. METRONIDAZOLE. [Suspect]
     Active Substance: METRONIDAZOLE
     Indication: HELICOBACTER INFECTION
     Dosage: 500 MG
     Route: 048
     Dates: start: 20141006, end: 20141015
  2. AMOXICILLIN. [Concomitant]
     Active Substance: AMOXICILLIN
     Indication: HELICOBACTER INFECTION
     Dosage: 1 G
     Route: 065
  3. OMEPRAZOLE. [Concomitant]
     Active Substance: OMEPRAZOLE
     Indication: HELICOBACTER INFECTION
     Dosage: 20 MG
     Route: 065

REACTIONS (10)
  - Dysphagia [Recovered/Resolved]
  - Muscle spasms [Recovering/Resolving]
  - Spinal osteoarthritis [Recovering/Resolving]
  - Neurotoxicity [Recovering/Resolving]
  - Neck pain [Recovering/Resolving]
  - Musculoskeletal stiffness [Recovering/Resolving]
  - Muscle contracture [Recovering/Resolving]
  - Hypokinesia [Recovering/Resolving]
  - Muscle contractions involuntary [Recovering/Resolving]
  - Pain [Recovering/Resolving]

NARRATIVE: CASE EVENT DATE: 201410
